FAERS Safety Report 24232937 (Version 6)
Quarter: 2025Q1

REPORT INFORMATION
  Report Type: Spontaneous
  Country: US (occurrence: US)
  Receive Date: 20240821
  Receipt Date: 20250304
  Transmission Date: 20250409
  Serious: No
  Sender: BRISTOL-MYERS SQUIBB COMPANY
  Company Number: US-BRISTOL-MYERS SQUIBB COMPANY-2024-129688

PATIENT
  Age: 77 Year
  Sex: Female
  Weight: 65.32 kg

DRUGS (2)
  1. REVLIMID [Suspect]
     Active Substance: LENALIDOMIDE
     Indication: Plasma cell myeloma
     Route: 048
     Dates: start: 20230301
  2. REVLIMID [Suspect]
     Active Substance: LENALIDOMIDE
     Route: 048
     Dates: start: 20231201

REACTIONS (6)
  - Diarrhoea [Recovering/Resolving]
  - Limb discomfort [Unknown]
  - Inflammation [Recovering/Resolving]
  - Nasopharyngitis [Unknown]
  - Hypoaesthesia [Recovering/Resolving]
  - Fatigue [Unknown]

NARRATIVE: CASE EVENT DATE: 20240701
